FAERS Safety Report 8051073-9 (Version None)
Quarter: 2012Q1

REPORT INFORMATION
  Report Type: 
  Country: None (occurrence: None)
  Receive Date: 20120117
  Receipt Date: 20120111
  Transmission Date: 20120608
  Serious: Yes (Hospitalization)
  Sender: FDA-Public Use
  Company Number: PHHY2012AU002600

PATIENT
  Sex: Female

DRUGS (2)
  1. TASIGNA [Suspect]
     Indication: CHRONIC MYELOID LEUKAEMIA
     Dosage: 600 MG, UNK
     Route: 048
     Dates: start: 20111204
  2. TASIGNA [Suspect]
     Dosage: 800 MG, UNK
     Route: 048

REACTIONS (3)
  - DRY EYE [None]
  - BLEPHAROSPASM [None]
  - CHOLELITHIASIS [None]
